FAERS Safety Report 9641816 (Version 2)
Quarter: 2013Q4

REPORT INFORMATION
  Report Type: Spontaneous
  Country: None (occurrence: None)
  Receive Date: 20131021
  Receipt Date: 20131223
  Transmission Date: 20140711
  Serious: Yes (Hospitalization)
  Sender: FDA-Public Use
  Company Number: DE-LHC-2013051

PATIENT
  Sex: Male

DRUGS (2)
  1. CONOXIA [Suspect]
     Indication: CHRONIC OBSTRUCTIVE PULMONARY DISEASE
     Dates: start: 20110201
  2. CONOXIA [Suspect]
     Indication: PULMONARY EMBOLISM
     Dates: start: 20110201

REACTIONS (4)
  - Accident [None]
  - Burns second degree [None]
  - Burns third degree [None]
  - Thermal burn [None]
